FAERS Safety Report 9634049 (Version 1)
Quarter: 2013Q4

REPORT INFORMATION
  Report Type: Spontaneous
  Country: US (occurrence: US)
  Receive Date: 20131021
  Receipt Date: 20131021
  Transmission Date: 20140711
  Serious: No
  Sender: FDA-Public Use
  Company Number: US-009507513-1310USA006995

PATIENT
  Age: 58 Year
  Sex: Female

DRUGS (5)
  1. ZOCOR [Suspect]
     Indication: BLOOD CHOLESTEROL INCREASED
     Dosage: UNK, QD
     Route: 048
     Dates: start: 201207, end: 2012
  2. TRIAMTERENE [Concomitant]
  3. SYNTHROID [Concomitant]
  4. ASPIRIN [Concomitant]
     Dosage: LOW DOSE
  5. GABAPENTIN [Concomitant]

REACTIONS (1)
  - Myalgia [Recovered/Resolved]
